FAERS Safety Report 5574000-2 (Version None)
Quarter: 2007Q4

REPORT INFORMATION
  Report Type: 
  Country: None (occurrence: None)
  Receive Date: 20071226
  Receipt Date: 20071221
  Transmission Date: 20080405
  Serious: Yes (Hospitalization)
  Sender: FDA-Public Use
  Company Number: FR-MERCK-0712FRA00095

PATIENT
  Age: 60 Year
  Sex: Male

DRUGS (12)
  1. CANCIDAS [Suspect]
     Indication: RESPIRATORY MONILIASIS
     Route: 042
     Dates: start: 20070404, end: 20070404
  2. CANCIDAS [Suspect]
     Route: 042
     Dates: start: 20070405, end: 20070423
  3. AMOXICILLIN [Suspect]
     Indication: LUNG INFECTION
     Route: 042
     Dates: start: 20070416, end: 20070421
  4. LINEZOLID [Suspect]
     Indication: LUNG INFECTION
     Route: 042
     Dates: start: 20070409, end: 20070418
  5. GANCICLOVIR SODIUM [Concomitant]
     Route: 042
     Dates: start: 20070324, end: 20070422
  6. PREDNISOLONE SODIUM METASULFOBENZOATE [Concomitant]
     Indication: LIVER TRANSPLANT
     Route: 048
     Dates: start: 20070324
  7. TACROLIMUS [Concomitant]
     Indication: LIVER TRANSPLANT
     Route: 042
     Dates: start: 20070324
  8. FUROSEMIDE [Concomitant]
     Indication: ISCHAEMIC CARDIOMYOPATHY
     Route: 042
  9. ENOXAPARIN SODIUM [Concomitant]
     Indication: ISCHAEMIC CARDIOMYOPATHY
     Route: 058
     Dates: start: 20070326
  10. BISOPROLOL [Concomitant]
     Indication: ISCHAEMIC CARDIOMYOPATHY
     Route: 048
     Dates: start: 20070412
  11. ASPIRIN [Concomitant]
     Indication: ISCHAEMIC CARDIOMYOPATHY
     Route: 048
     Dates: start: 20070326
  12. RAMIPRIL [Concomitant]
     Indication: ISCHAEMIC CARDIOMYOPATHY
     Route: 048
     Dates: start: 20070412

REACTIONS (1)
  - RASH MORBILLIFORM [None]
